FAERS Safety Report 9843041 (Version 2)
Quarter: 2014Q1

REPORT INFORMATION
  Report Type: Spontaneous
  Country: GB (occurrence: GB)
  Receive Date: 20140124
  Receipt Date: 20140124
  Transmission Date: 20141002
  Serious: Yes (Death, Other)
  Sender: FDA-Public Use
  Company Number: GB-CELGENEUS-167-21880-13080876

PATIENT
  Sex: Male
  Weight: 83.8 kg

DRUGS (8)
  1. REVLIMID [Suspect]
     Indication: PRIMARY AMYLOIDOSIS
     Dosage: 5 MILLIGRAM
     Route: 048
     Dates: start: 20130403, end: 20130501
  2. DEXAMETHASONE [Concomitant]
     Indication: AMYLOIDOSIS
     Dosage: 10 MILLIGRAM
     Route: 065
     Dates: start: 20130424, end: 20130427
  3. BISOPROLOL [Concomitant]
     Indication: CARDIAC FAILURE
     Dosage: 10 MILLIGRAM
     Route: 065
  4. BUMETANIDE [Concomitant]
     Indication: CARDIAC FAILURE
     Route: 065
  5. AMIODARONE [Concomitant]
     Indication: ARRHYTHMIA
     Dosage: 200 MILLIGRAM
     Route: 065
  6. SPIRONOLACTONE [Concomitant]
     Indication: CARDIAC FAILURE
     Dosage: 25 MILLIGRAM
     Route: 065
  7. ASPIRINE [Concomitant]
     Indication: CARDIAC DISORDER
     Route: 065
  8. LANSOPRAZOLE [Concomitant]
     Indication: PROPHYLAXIS
     Dosage: 30 MILLIGRAM
     Route: 065
     Dates: start: 20130424

REACTIONS (2)
  - Renal impairment [Fatal]
  - Primary amyloidosis [Fatal]
